FAERS Safety Report 14296700 (Version 2)
Quarter: 2018Q1

REPORT INFORMATION
  Report Type: Spontaneous
  Country: JP (occurrence: JP)
  Receive Date: 20171218
  Receipt Date: 20180123
  Transmission Date: 20180509
  Serious: Yes (Hospitalization)
  Sender: FDA-Public Use
  Company Number: JP-PFIZER INC-2017535186

PATIENT
  Age: 80 Year
  Sex: Female
  Weight: 71.2 kg

DRUGS (10)
  1. AMLODIN [Suspect]
     Active Substance: AMLODIPINE BESYLATE
     Dosage: 5 MG, DAILY
     Route: 048
     Dates: start: 20170420, end: 20171124
  2. AVAPRO [Suspect]
     Active Substance: IRBESARTAN
     Indication: HYPERTENSION
     Dosage: 100 MG, DAILY
     Route: 048
     Dates: start: 20150321, end: 20171124
  3. AIMIX [Concomitant]
     Active Substance: AMLODIPINE BESYLATE\IRBESARTAN
     Dosage: UNK
     Dates: start: 20131216, end: 20150320
  4. FLUITRAN [Concomitant]
     Active Substance: TRICHLORMETHIAZIDE
     Dosage: UNK
     Dates: start: 20140120, end: 20150123
  5. MAGMITT [Concomitant]
     Active Substance: MAGNESIUM OXIDE
     Dosage: UNK
     Dates: start: 20150808
  6. AMLODIN [Suspect]
     Active Substance: AMLODIPINE BESYLATE
     Indication: HYPERTENSION
     Dosage: 2.5 MG, DAILY
     Route: 048
     Dates: start: 20150321, end: 20170419
  7. LOXONIN [Concomitant]
     Active Substance: LOXOPROFEN SODIUM
     Dosage: UNK
     Dates: start: 20110530
  8. OPALMON [Concomitant]
     Active Substance: LIMAPROST
     Dosage: UNK
     Dates: start: 20110530
  9. METHYCOBAL [Concomitant]
     Active Substance: METHYLCOBALAMIN
     Dosage: UNK
     Dates: start: 20110530
  10. MUCOSTA [Concomitant]
     Active Substance: REBAMIPIDE
     Dosage: UNK
     Dates: start: 20110530

REACTIONS (2)
  - Gait disturbance [Recovered/Resolved]
  - Rhabdomyolysis [Recovered/Resolved]

NARRATIVE: CASE EVENT DATE: 20171123
